FAERS Safety Report 7296870-2 (Version None)
Quarter: 2011Q1

REPORT INFORMATION
  Report Type: 
  Country: None (occurrence: None)
  Receive Date: 20110204
  Receipt Date: 20110126
  Transmission Date: 20110831
  Serious: Yes (Hospitalization)
  Sender: FDA-Public Use
  Company Number: 2011SP003881

PATIENT
  Age: 65 Year
  Sex: Female

DRUGS (5)
  1. CITALOPRAM (CITALOPRAM) [Suspect]
     Indication: PRODUCT USED FOR UNKNOWN INDICATION
     Dosage: 20 MG; 40 MG,
     Dates: start: 20100818, end: 20101018
  2. CITALOPRAM (CITALOPRAM) [Suspect]
     Indication: PRODUCT USED FOR UNKNOWN INDICATION
     Dosage: 20 MG; 40 MG,
     Dates: start: 20100712, end: 20100817
  3. REMERON [Suspect]
     Indication: PRODUCT USED FOR UNKNOWN INDICATION
     Dosage: 22.5 MG; 45 MG
     Dates: start: 20100826, end: 20100829
  4. ATACAND [Concomitant]
  5. MALIASIN [Concomitant]

REACTIONS (1)
  - PEMPHIGOID [None]
